FAERS Safety Report 20169185 (Version 1)
Quarter: 2021Q4

REPORT INFORMATION
  Report Type: Spontaneous
  Country: CN (occurrence: CN)
  Receive Date: 20211210
  Receipt Date: 20211210
  Transmission Date: 20220303
  Serious: Yes (Life-Threatening, Hospitalization)
  Sender: FDA-Public Use
  Company Number: CN-BAXTER-2021BAX038868

PATIENT
  Age: 41 Year
  Sex: Female
  Weight: 57 kg

DRUGS (6)
  1. CYCLOPHOSPHAMIDE [Suspect]
     Active Substance: CYCLOPHOSPHAMIDE
     Indication: Acute lymphocytic leukaemia
     Dosage: CYCLOPHOSPHAMIDE (0.93G) + 0.9% SODIUM CHLORIDE (500ML)
     Route: 041
     Dates: start: 20211118, end: 20211118
  2. SODIUM CHLORIDE [Suspect]
     Active Substance: SODIUM CHLORIDE
     Indication: Medication dilution
     Dosage: CYCLOPHOSPHAMIDE FOR INJECTION (0.93G) + 0.9% SODIUM CHLORIDE INJECTION (500ML)
     Route: 041
     Dates: start: 20211118, end: 20211118
  3. SODIUM CHLORIDE [Suspect]
     Active Substance: SODIUM CHLORIDE
     Dosage: VINCRISTINE SULFATE FOR INJECTION 2 G + 0.9% SODIUM CHLORIDE INJECTION 100 ML
     Route: 041
     Dates: start: 20211118, end: 20211118
  4. SODIUM CHLORIDE [Suspect]
     Active Substance: SODIUM CHLORIDE
     Dosage: DAUNORUBICIN HYDROCHLORIDE FOR INJECTION (60 MG) + 0.9% SODIUM CHLORIDE INJECTION (250ML)
     Route: 041
     Dates: start: 20211118, end: 20211120
  5. VINCRISTINE SULFATE [Suspect]
     Active Substance: VINCRISTINE SULFATE
     Indication: Acute lymphocytic leukaemia
     Dosage: VINCRISTINE SULFATE FOR INJECTION (2G) + 0.9% SODIUM CHLORIDE INJECTION (100ML)
     Route: 041
     Dates: start: 20211118, end: 20211118
  6. DAUNORUBICIN HYDROCHLORIDE [Suspect]
     Active Substance: DAUNORUBICIN HYDROCHLORIDE
     Indication: Acute lymphocytic leukaemia
     Dosage: DAUNORUBICIN HYDROCHLORIDE FOR INJECTION (60 MG) + 0.9% SODIUM CHLORIDE INJECTION (250ML)
     Route: 041
     Dates: start: 20211118, end: 20211120

REACTIONS (2)
  - White blood cell count decreased [Unknown]
  - Neutrophil count decreased [Unknown]

NARRATIVE: CASE EVENT DATE: 20211124
